FAERS Safety Report 10417386 (Version 1)
Quarter: 2014Q3

REPORT INFORMATION
  Report Type: Spontaneous
  Country: NL (occurrence: NL)
  Receive Date: 20140829
  Receipt Date: 20140829
  Transmission Date: 20150326
  Serious: Yes (Death)
  Sender: FDA-Public Use
  Company Number: NL-AMGEN-NLDSP2014065304

PATIENT
  Age: 76 Year
  Sex: Female

DRUGS (1)
  1. XGEVA [Suspect]
     Active Substance: DENOSUMAB
     Indication: PRODUCT USED FOR UNKNOWN INDICATION
     Dosage: 1.7 ML (70MG/ML) Q4WK
     Route: 058
     Dates: start: 20131101, end: 20140825

REACTIONS (1)
  - Death [Fatal]

NARRATIVE: CASE EVENT DATE: 20140825
